FAERS Safety Report 7563627-4 (Version None)
Quarter: 2011Q2

REPORT INFORMATION
  Report Type: 
  Country: None (occurrence: None)
  Receive Date: 20110622
  Receipt Date: 20110616
  Transmission Date: 20111010
  Serious: Yes (Death, Hospitalization, Other)
  Sender: FDA-Public Use
  Company Number: MX-BRISTOL-MYERS SQUIBB COMPANY-15844392

PATIENT
  Age: 88 Year
  Sex: Female
  Weight: 63 kg

DRUGS (3)
  1. NATURAL LAXATIVE [Concomitant]
     Indication: CONSTIPATION
     Route: 048
     Dates: start: 20101201
  2. IRBESARTAN AND HYDROCHLOROTHIAZIDE [Suspect]
     Indication: HYPERTENSION
     Dosage: 1DF:2 TABS
     Route: 048
     Dates: start: 19980101, end: 20101217
  3. GLUCOPHAGE [Suspect]
     Indication: DIABETES MELLITUS
     Dosage: 1DF:1 TAB
     Route: 048
     Dates: start: 19980101

REACTIONS (3)
  - RENAL FAILURE [None]
  - MYOCARDIAL INFARCTION [None]
  - HEPATIC CIRRHOSIS [None]
